FAERS Safety Report 8279993-0 (Version None)
Quarter: 2012Q2

REPORT INFORMATION
  Report Type: 
  Country: None (occurrence: None)
  Receive Date: 20120412
  Receipt Date: 20110719
  Transmission Date: 20120825
  Serious: No
  Sender: FDA-Public Use
  Company Number: US-ASTRAZENECA-2011SE34312

PATIENT
  Age: 26 Year
  Sex: Male

DRUGS (1)
  1. NEXIUM [Suspect]
     Route: 048

REACTIONS (4)
  - NASAL CONGESTION [None]
  - NASOPHARYNGITIS [None]
  - HYPERSENSITIVITY [None]
  - MALAISE [None]
